FAERS Safety Report 20510904 (Version 2)
Quarter: 2022Q1

REPORT INFORMATION
  Report Type: Spontaneous
  Country: US (occurrence: US)
  Receive Date: 20220224
  Receipt Date: 20220302
  Transmission Date: 20220424
  Serious: Yes (Other)
  Sender: FDA-Public Use
  Company Number: US-BAYER-2022A027903

PATIENT
  Age: 28 Year
  Sex: Female

DRUGS (1)
  1. KYLEENA [Suspect]
     Active Substance: LEVONORGESTREL
     Indication: Contraception
     Dosage: 17.5?G/DAY
     Route: 015
     Dates: start: 2019

REACTIONS (3)
  - Device dislocation [Unknown]
  - Genital haemorrhage [None]
  - Device issue [None]

NARRATIVE: CASE EVENT DATE: 20220216
